FAERS Safety Report 23721040 (Version 2)
Quarter: 2024Q2

REPORT INFORMATION
  Report Type: Spontaneous
  Country: IT (occurrence: IT)
  Receive Date: 20240409
  Receipt Date: 20240424
  Transmission Date: 20240716
  Serious: Yes (Other)
  Sender: FDA-Public Use
  Company Number: None

PATIENT
  Age: 72 Year
  Sex: Male
  Weight: 78 kg

DRUGS (6)
  1. CABOMETYX [Suspect]
     Active Substance: CABOZANTINIB S-MALATE
     Indication: Hepatocellular carcinoma
     Dosage: 60 MG, QD
     Route: 048
     Dates: start: 20240222, end: 20240316
  2. PREGABALIN [Concomitant]
     Active Substance: PREGABALIN
     Dosage: 25 MG, QD
     Route: 048
  3. RIFAXIMIN [Concomitant]
     Active Substance: RIFAXIMIN
     Dosage: 550 MG, BID
     Route: 048
  4. LACTULOSE [Concomitant]
     Active Substance: LACTULOSE
     Dosage: 2-4 SCOOPS, QD
     Route: 048
  5. COUMADIN [Concomitant]
     Active Substance: WARFARIN SODIUM
     Dosage: 2.5 MG, QD (1/2 TABLET)
     Route: 048
  6. Luvion [Concomitant]
     Dosage: 100 MG, QD
     Route: 048

REACTIONS (1)
  - Hepatic encephalopathy [Recovering/Resolving]

NARRATIVE: CASE EVENT DATE: 20240318
